FAERS Safety Report 12538484 (Version 1)
Quarter: 2016Q3

REPORT INFORMATION
  Report Type: Other
  Country: DE (occurrence: DE)
  Receive Date: 20160707
  Receipt Date: 20160707
  Transmission Date: 20161109
  Serious: No
  Sender: FDA-Public Use
  Company Number: DE-LUPIN PHARMACEUTICALS INC.-2016-02021

PATIENT
  Age: 26 Year
  Sex: Female

DRUGS (1)
  1. DOXYCYCLINE. [Suspect]
     Active Substance: DOXYCYCLINE
     Indication: RELAPSING FEVER
     Dosage: 100 MG
     Route: 042

REACTIONS (1)
  - Jarisch-Herxheimer reaction [Recovered/Resolved]
